FAERS Safety Report 5482836-1 (Version None)
Quarter: 2007Q4

REPORT INFORMATION
  Report Type: 
  Country: None (occurrence: None)
  Receive Date: 20071011
  Receipt Date: 20071001
  Transmission Date: 20080405
  Serious: Yes (Hospitalization, Other)
  Sender: FDA-Public Use
  Company Number: US-PFIZER INC-2007044421

PATIENT
  Sex: Female
  Weight: 58.1 kg

DRUGS (3)
  1. CELEBREX [Suspect]
     Indication: ARTHRALGIA
     Route: 048
     Dates: start: 20000913, end: 20030801
  2. BEXTRA [Suspect]
     Indication: PAIN
     Route: 048
     Dates: start: 20031009, end: 20031201
  3. BEXTRA [Suspect]
     Indication: ARTHRALGIA

REACTIONS (3)
  - CARDIOVASCULAR DISORDER [None]
  - CEREBROVASCULAR ACCIDENT [None]
  - PULMONARY EMBOLISM [None]
